FAERS Safety Report 9276533 (Version 1)
Quarter: 2013Q2

REPORT INFORMATION
  Report Type: Report from Study
  Country: US (occurrence: US)
  Receive Date: 20130507
  Receipt Date: 20130507
  Transmission Date: 20140414
  Serious: Yes (Death, Other)
  Sender: FDA-Public Use
  Company Number: US-PFIZER INC-2013137369

PATIENT
  Age: 45 Year
  Sex: Male

DRUGS (18)
  1. TEMSIROLIMUS [Suspect]
     Indication: HEAD AND NECK CANCER
     Dosage: UNK
     Dates: start: 20130205
  2. TEMSIROLIMUS [Suspect]
     Indication: HEAD AND NECK CANCER METASTATIC
  3. TEMSIROLIMUS [Suspect]
     Indication: SQUAMOUS CELL CARCINOMA OF HEAD AND NECK
  4. TEMSIROLIMUS [Suspect]
     Indication: EAR NEOPLASM
  5. TEMSIROLIMUS [Suspect]
     Indication: MALIGNANT NEOPLASM OF EYE
  6. TEMSIROLIMUS [Suspect]
     Indication: THROAT CANCER
  7. CARBOPLATIN [Suspect]
     Indication: HEAD AND NECK CANCER
     Dosage: UNK
     Dates: start: 20130205
  8. CARBOPLATIN [Suspect]
     Indication: HEAD AND NECK CANCER METASTATIC
  9. CARBOPLATIN [Suspect]
     Indication: SQUAMOUS CELL CARCINOMA OF HEAD AND NECK
  10. CARBOPLATIN [Suspect]
     Indication: EAR NEOPLASM
  11. CARBOPLATIN [Suspect]
     Indication: MALIGNANT NEOPLASM OF EYE
  12. CARBOPLATIN [Suspect]
     Indication: THROAT CANCER
  13. TAXOL [Suspect]
     Indication: HEAD AND NECK CANCER
     Dosage: UNK
     Dates: start: 20130205
  14. TAXOL [Suspect]
     Indication: HEAD AND NECK CANCER METASTATIC
  15. TAXOL [Suspect]
     Indication: SQUAMOUS CELL CARCINOMA OF HEAD AND NECK
  16. TAXOL [Suspect]
     Indication: EAR NEOPLASM
  17. TAXOL [Suspect]
     Indication: MALIGNANT NEOPLASM OF EYE
  18. TAXOL [Suspect]
     Indication: THROAT CANCER

REACTIONS (2)
  - Sudden death [Fatal]
  - Mental status changes [Unknown]
